FAERS Safety Report 8941140 (Version 9)
Quarter: 2014Q4

REPORT INFORMATION
  Report Type: Spontaneous
  Country: US (occurrence: US)
  Receive Date: 20121203
  Receipt Date: 20141125
  Transmission Date: 20150529
  Serious: Yes (Hospitalization, Disabling, Other)
  Sender: FDA-Public Use
  Company Number: US-009507513-1211USA012342

PATIENT
  Sex: Female
  Weight: 67.2 kg

DRUGS (4)
  1. FOSAMAX [Suspect]
     Active Substance: ALENDRONATE SODIUM
     Indication: OSTEOPOROSIS
     Dosage: 70 MG, QW
     Route: 048
     Dates: start: 2000, end: 20071204
  2. ALENDRONATE SODIUM. [Suspect]
     Active Substance: ALENDRONATE SODIUM
     Dosage: 70 MG, UNK
     Route: 048
     Dates: start: 20080303, end: 20110708
  3. FOSAMAX [Suspect]
     Active Substance: ALENDRONATE SODIUM
     Indication: OSTEOPENIA
  4. PREVACID [Concomitant]
     Active Substance: LANSOPRAZOLE
     Indication: PEPTIC ULCER
     Dosage: UNK, PRN
     Dates: start: 1983

REACTIONS (91)
  - Internal fixation of fracture [Unknown]
  - Internal fixation of fracture [Unknown]
  - Shoulder operation [Unknown]
  - Hysterectomy [Unknown]
  - Muscle strain [Unknown]
  - Appendicectomy [Unknown]
  - Temporomandibular joint syndrome [Unknown]
  - Bursitis [Unknown]
  - Tendon sheath incision [Unknown]
  - Urinary tract infection [Unknown]
  - Hip fracture [Not Recovered/Not Resolved]
  - Hip arthroplasty [Unknown]
  - Low turnover osteopathy [Not Recovered/Not Resolved]
  - Chronic obstructive pulmonary disease [Not Recovered/Not Resolved]
  - Road traffic accident [Unknown]
  - Migraine [Unknown]
  - Sinus tachycardia [Unknown]
  - Renal cyst [Unknown]
  - Hypomagnesaemia [Unknown]
  - Osteoarthritis [Unknown]
  - Drug ineffective [Unknown]
  - Gastrooesophageal reflux disease [Unknown]
  - Hip fracture [Unknown]
  - Arthroscopy [Unknown]
  - Diabetic neuropathy [Unknown]
  - Arthropathy [Unknown]
  - Cystoscopy [Unknown]
  - Osteoarthritis [Unknown]
  - Elbow operation [Unknown]
  - Syncope [Unknown]
  - Ear discomfort [Unknown]
  - Urinary retention [Unknown]
  - Blood alkaline phosphatase increased [Unknown]
  - Back pain [Not Recovered/Not Resolved]
  - Drug ineffective [Unknown]
  - Nephrolithiasis [Unknown]
  - Tendon sheath incision [Unknown]
  - Sleep apnoea syndrome [Unknown]
  - Cough [Unknown]
  - Hepatic steatosis [Unknown]
  - Hip fracture [Unknown]
  - Open reduction of fracture [Unknown]
  - Osteoporosis [Not Recovered/Not Resolved]
  - Blindness [Unknown]
  - Surgery [Unknown]
  - Cholecystectomy [Unknown]
  - Haemorrhagic anaemia [Unknown]
  - Arthritis [Unknown]
  - Carpal tunnel decompression [Unknown]
  - Hypoxia [Unknown]
  - Bronchitis [Unknown]
  - Non-alcoholic steatohepatitis [Unknown]
  - Polyp [Unknown]
  - Oophorectomy bilateral [Unknown]
  - Gastrooesophageal reflux disease [Unknown]
  - Arthralgia [Unknown]
  - Femur fracture [Unknown]
  - Periprosthetic fracture [Unknown]
  - Femur fracture [Not Recovered/Not Resolved]
  - Vitamin D deficiency [Unknown]
  - Insomnia [Unknown]
  - Cardiomegaly [Unknown]
  - Rotator cuff syndrome [Unknown]
  - Liver function test abnormal [Unknown]
  - Carpal tunnel decompression [Unknown]
  - Meralgia paraesthetica [Unknown]
  - Microalbuminuria [Unknown]
  - Asthenia [Unknown]
  - Oedema peripheral [Unknown]
  - Femoral neck fracture [Unknown]
  - Stress fracture [Not Recovered/Not Resolved]
  - Hypercholesterolaemia [Unknown]
  - Osteopetrosis [Unknown]
  - Arthrotomy [Unknown]
  - Ligament sprain [Unknown]
  - Bursitis [Unknown]
  - Foot fracture [Unknown]
  - Chest pain [Unknown]
  - Asthenia [Unknown]
  - Back pain [Unknown]
  - Femur fracture [Not Recovered/Not Resolved]
  - Femoral neck fracture [Unknown]
  - Hip arthroplasty [Unknown]
  - Calcium deficiency [Unknown]
  - Hypertension [Unknown]
  - Depression [Unknown]
  - Joint surgery [Unknown]
  - Shoulder operation [Unknown]
  - Bladder spasm [Unknown]
  - Tension headache [Unknown]
  - Dysphagia [Unknown]

NARRATIVE: CASE EVENT DATE: 2000
